FAERS Safety Report 7590410-6 (Version None)
Quarter: 2011Q3

REPORT INFORMATION
  Report Type: 
  Country: None (occurrence: None)
  Receive Date: 20110705
  Receipt Date: 20110621
  Transmission Date: 20111222
  Serious: Yes (Other)
  Sender: FDA-Public Use
  Company Number: US-JNJFOC-20110405073

PATIENT
  Sex: Female

DRUGS (4)
  1. REMICADE [Suspect]
     Dosage: LAST INFUISON RECEIVED
     Route: 042
     Dates: start: 20110218
  2. REMICADE [Suspect]
     Indication: PSORIASIS
     Route: 042
     Dates: start: 20020430
  3. REMICADE [Suspect]
     Dosage: LAST INFUISON RECEIVED
     Route: 042
     Dates: start: 20110218
  4. REMICADE [Suspect]
     Indication: PSORIATIC ARTHROPATHY
     Route: 042
     Dates: start: 20020430

REACTIONS (2)
  - ANGIOEDEMA [None]
  - ERYTHEMA MULTIFORME [None]
